FAERS Safety Report 23259789 (Version 3)
Quarter: 2023Q4

REPORT INFORMATION
  Report Type: Spontaneous
  Country: CN (occurrence: CN)
  Receive Date: 20231204
  Receipt Date: 20231208
  Transmission Date: 20240110
  Serious: Yes (Hospitalization, Other)
  Sender: FDA-Public Use
  Company Number: CN-002147023-NVSC2023CN255548

PATIENT
  Age: 34 Year
  Sex: Male

DRUGS (1)
  1. COSENTYX [Suspect]
     Active Substance: SECUKINUMAB
     Indication: Product used for unknown indication
     Dosage: UNK
     Route: 065
     Dates: start: 20230524, end: 20231021

REACTIONS (15)
  - Ear pain [Unknown]
  - Ear discomfort [Not Recovered/Not Resolved]
  - Acute lymphocytic leukaemia [Recovering/Resolving]
  - Head discomfort [Unknown]
  - Arteriosclerosis [Unknown]
  - Arteriospasm coronary [Unknown]
  - Cardiac dysfunction [Unknown]
  - Psoriasis [Unknown]
  - White blood cell count increased [Recovering/Resolving]
  - Blood magnesium increased [Unknown]
  - Blood glucose increased [Unknown]
  - Glucose urine present [Unknown]
  - Blood urea increased [Unknown]
  - Blood bilirubin unconjugated increased [Unknown]
  - Blood bilirubin increased [Unknown]

NARRATIVE: CASE EVENT DATE: 20230701
